APPROVED DRUG PRODUCT: PIVYA
Active Ingredient: PIVMECILLINAM HYDROCHLORIDE
Strength: EQ 185MG BASE
Dosage Form/Route: TABLET;ORAL
Application: N216483 | Product #001
Applicant: ALEMBIC THERAPEUTICS LLC
Approved: Apr 24, 2024 | RLD: Yes | RS: Yes | Type: RX